FAERS Safety Report 6394106-8 (Version None)
Quarter: 2009Q4

REPORT INFORMATION
  Report Type: 
  Country: None (occurrence: None)
  Receive Date: 20091008
  Receipt Date: 20090928
  Transmission Date: 20100525
  Serious: Yes (Hospitalization)
  Sender: FDA-Public Use
  Company Number: JP-SANOFI-SYNTHELABO-F01200900928

PATIENT
  Sex: Female
  Weight: 49.9 kg

DRUGS (12)
  1. NITOROL [Concomitant]
     Indication: ANGINA UNSTABLE
     Dosage: 2.5 MG
     Route: 022
     Dates: start: 20080924, end: 20080924
  2. HUMACART [Concomitant]
     Dosage: 8 UNIT
     Route: 048
  3. HUMALOG [Concomitant]
     Dosage: 16 UNIT
     Route: 058
  4. WARFARIN [Concomitant]
     Indication: PULMONARY EMBOLISM
     Dosage: 2.5 MG
     Route: 048
  5. MEVALOTIN [Concomitant]
     Dosage: 10 MG
     Route: 048
     Dates: end: 20080923
  6. MEVALOTIN [Concomitant]
     Dosage: 20 MG
     Route: 048
     Dates: start: 20080924, end: 20080924
  7. RENIVACE [Concomitant]
     Route: 048
  8. AMLODIPINE [Concomitant]
     Route: 048
  9. HEPARIN [Concomitant]
     Indication: ANGINA UNSTABLE
     Dosage: 15000 UNIT
     Route: 042
     Dates: start: 20080924, end: 20080924
  10. ASPIRIN [Suspect]
     Dosage: 100 MG
     Route: 048
  11. CLOPIDOGREL [Suspect]
     Indication: ACUTE CORONARY SYNDROME
     Dosage: MAINTENANCE DOSE
     Route: 048
     Dates: start: 20080921
  12. CLOPIDOGREL [Suspect]
     Indication: ANGINA UNSTABLE
     Dosage: MAINTENANCE DOSE
     Route: 048
     Dates: start: 20080921

REACTIONS (1)
  - COLITIS ISCHAEMIC [None]
